FAERS Safety Report 5814426-2 (Version None)
Quarter: 2008Q3

REPORT INFORMATION
  Report Type: 
  Country: None (occurrence: None)
  Receive Date: 20080718
  Receipt Date: 20080707
  Transmission Date: 20090109
  Serious: Yes (Hospitalization)
  Sender: FDA-Public Use
  Company Number: PHBS2008TW05053

PATIENT
  Age: 58 Year
  Sex: Female

DRUGS (2)
  1. NEORAL [Suspect]
     Indication: RENAL TRANSPLANT
     Dosage: 75 MG, BID
  2. MYCOPHENOLATE MOFETIL [Concomitant]
     Indication: RENAL TRANSPLANT
     Dosage: 250 MG, BID

REACTIONS (12)
  - ABDOMINAL PAIN [None]
  - APPENDICECTOMY [None]
  - BLOOD CREATININE INCREASED [None]
  - BLOOD GLUCOSE INCREASED [None]
  - C-REACTIVE PROTEIN INCREASED [None]
  - HAEMATURIA [None]
  - KLEBSIELLA INFECTION [None]
  - NEPHRITIS [None]
  - PERITONEAL EFFUSION [None]
  - PYREXIA [None]
  - PYURIA [None]
  - WHITE BLOOD CELL COUNT INCREASED [None]
